FAERS Safety Report 9460399 (Version 5)
Quarter: 2014Q2

REPORT INFORMATION
  Report Type: Spontaneous
  Country: US (occurrence: US)
  Receive Date: 20130815
  Receipt Date: 20140401
  Transmission Date: 20141212
  Serious: Yes (Hospitalization, Disabling, Other)
  Sender: FDA-Public Use
  Company Number: US-009507513-1308USA005205

PATIENT
  Sex: Female
  Weight: 76.19 kg

DRUGS (5)
  1. FOSAMAX [Suspect]
     Indication: OSTEOPOROSIS
     Dosage: 70 MG, UNK
     Route: 048
     Dates: start: 2001
  2. FOSAMAX [Suspect]
     Indication: OSTEOPENIA
  3. ATIVAN [Concomitant]
     Indication: ANXIETY
     Dosage: UNK
     Dates: start: 2000
  4. AMBIEN [Concomitant]
     Indication: INSOMNIA
     Dosage: UNK
     Dates: start: 2000
  5. CELEXA [Concomitant]
     Indication: DEPRESSION
     Dosage: UNK
     Dates: start: 2000

REACTIONS (30)
  - Breast cancer [Unknown]
  - Low turnover osteopathy [Not Recovered/Not Resolved]
  - Femur fracture [Recovered/Resolved]
  - Femur fracture [Not Recovered/Not Resolved]
  - Depression [Not Recovered/Not Resolved]
  - Anxiety [Not Recovered/Not Resolved]
  - Rib fracture [Unknown]
  - Rib fracture [Unknown]
  - Foot fracture [Unknown]
  - Foot fracture [Unknown]
  - Vitamin D deficiency [Recovered/Resolved]
  - Adverse event [Unknown]
  - Stress fracture [Unknown]
  - Oophorectomy bilateral [Unknown]
  - Scoliosis [Unknown]
  - Malnutrition [Unknown]
  - Cortisol free urine increased [Unknown]
  - Increased tendency to bruise [Unknown]
  - Stress at work [Unknown]
  - Weight increased [Unknown]
  - Glucose tolerance impaired [Unknown]
  - Fall [Unknown]
  - Erythema [Unknown]
  - Finger deformity [Unknown]
  - Scleral discolouration [Unknown]
  - Drug ineffective [Unknown]
  - Blood phosphorus decreased [Unknown]
  - Gastrooesophageal reflux disease [Unknown]
  - Constipation [Unknown]
  - Intramedullary rod insertion [Unknown]
